FAERS Safety Report 6425237-1 (Version None)
Quarter: 2009Q4

REPORT INFORMATION
  Report Type: 
  Country: None (occurrence: None)
  Receive Date: 20091030
  Receipt Date: 20091030
  Transmission Date: 20100525
  Serious: Yes (Death)
  Sender: FDA-Public Use
  Company Number: None

PATIENT
  Age: 52 Day
  Sex: Female
  Weight: 2.4 kg

DRUGS (3)
  1. COTRIMOXAZOLE [Suspect]
     Indication: HIV INFECTION
     Dosage: 120 MG QD ORALLY
     Route: 048
     Dates: start: 20090923, end: 20091004
  2. MULTI-VITAMIN [Concomitant]
  3. FERROUS SULPHATE SYRUP [Concomitant]

REACTIONS (2)
  - DYSPNOEA [None]
  - RESPIRATORY DISORDER [None]
